FAERS Safety Report 4453248-4 (Version None)
Quarter: 2004Q3

REPORT INFORMATION
  Report Type: 
  Country: None (occurrence: None)
  Receive Date: 20040901
  Receipt Date: 20040623
  Transmission Date: 20050211
  Serious: Yes (Hospitalization)
  Sender: FDA-Public Use
  Company Number: US081401

PATIENT
  Age: 56 Year
  Sex: Male

DRUGS (8)
  1. ENBREL [Suspect]
     Indication: PSORIATIC ARTHROPATHY
     Dosage: 25 MG, 2 IN 1 WEEKS, SC
     Route: 058
     Dates: start: 20040206
  2. PREDNISONE [Concomitant]
  3. METHADONE HCL [Concomitant]
  4. ESOMEPRAZOLE MAGNESIUM [Concomitant]
  5. METOCLOPRAMIDE [Concomitant]
  6. CARISOPRODOL [Concomitant]
  7. HYDROCODONE [Concomitant]
  8. PROMETHAZINE HCL [Concomitant]

REACTIONS (3)
  - ABDOMINAL PAIN [None]
  - CONDITION AGGRAVATED [None]
  - HYPERTENSION [None]
